FAERS Safety Report 7657284-6 (Version None)
Quarter: 2011Q3

REPORT INFORMATION
  Report Type: 
  Country: None (occurrence: None)
  Receive Date: 20110804
  Receipt Date: 20110802
  Transmission Date: 20111222
  Serious: Yes (Hospitalization)
  Sender: FDA-Public Use
  Company Number: US-SANOFI-AVENTIS-2011SA044209

PATIENT
  Age: 76 Year
  Sex: Male
  Weight: 100 kg

DRUGS (5)
  1. METOPROLOL TARTRATE [Concomitant]
     Route: 065
  2. WARFARIN [Concomitant]
     Route: 065
  3. DOXAZOSIN MESYLATE [Concomitant]
     Route: 065
  4. DRONEDARONE [Suspect]
     Indication: ATRIAL FIBRILLATION
     Route: 048
     Dates: start: 20101206, end: 20110425
  5. TICLOPIDINE HCL [Concomitant]
     Route: 065

REACTIONS (1)
  - SYNCOPE [None]
